FAERS Safety Report 9132761 (Version 1)
Quarter: 2013Q1

REPORT INFORMATION
  Report Type: Spontaneous
  Country: RS (occurrence: RS)
  Receive Date: 20130301
  Receipt Date: 20130301
  Transmission Date: 20140127
  Serious: Yes (Hospitalization, Other)
  Sender: FDA-Public Use
  Company Number: PHHY2013RS017805

PATIENT
  Age: 63 Year
  Sex: Male

DRUGS (4)
  1. MAPROTILINE [Suspect]
     Dosage: 125 MG, QD
  2. HALOPERIDOL [Suspect]
     Dosage: 4 MG, QD
  3. LITHIUM CARBONATE [Suspect]
     Dosage: 900 MG, QD
  4. METFORMIN [Concomitant]
     Indication: DIABETES MELLITUS
     Dosage: 2000 MG, QD

REACTIONS (10)
  - Renal failure acute [Recovered/Resolved]
  - Somnolence [Unknown]
  - Restlessness [Unknown]
  - Oliguria [Recovered/Resolved]
  - Hypokinesia [Unknown]
  - Confusional state [Unknown]
  - Swelling face [Unknown]
  - Joint swelling [Unknown]
  - Drug level increased [Unknown]
  - Fatigue [Unknown]
